FAERS Safety Report 9239024 (Version 1)
Quarter: 2013Q2

REPORT INFORMATION
  Report Type: Report from Study
  Country: US (occurrence: US)
  Receive Date: 20130418
  Receipt Date: 20130418
  Transmission Date: 20140414
  Serious: Yes (Other)
  Sender: FDA-Public Use
  Company Number: US-ROCHE-1215182

PATIENT
  Age: 59 Year
  Sex: Female

DRUGS (1)
  1. XELODA [Suspect]
     Indication: BREAST CANCER
     Route: 048
     Dates: start: 20120611, end: 20121215

REACTIONS (2)
  - Joint lock [Recovering/Resolving]
  - Musculoskeletal stiffness [Recovering/Resolving]
